FAERS Safety Report 11579383 (Version 1)
Quarter: 2015Q3

REPORT INFORMATION
  Report Type: Spontaneous
  Country: US (occurrence: US)
  Receive Date: 20150930
  Receipt Date: 20150930
  Transmission Date: 20151125
  Serious: No
  Sender: FDA-Public Use
  Company Number: US-PFIZER INC-2015314690

PATIENT
  Age: 62 Year
  Sex: Female
  Weight: 79 kg

DRUGS (9)
  1. CALCIUM [Concomitant]
     Active Substance: CALCIUM
     Dosage: 1000 MG, 1X/DAY
  2. VITAMIN D [Concomitant]
     Active Substance: CHOLECALCIFEROL
     Dosage: UNK
  3. TRICOR [Concomitant]
     Active Substance: FENOFIBRATE
     Indication: BLOOD CHOLESTEROL ABNORMAL
     Dosage: 72.5 MG, ALTERNATE DAY (145MG, HALF TABLET EVERY OTHER DAY)
  4. MAGNESIUM [Concomitant]
     Active Substance: MAGNESIUM
     Dosage: UNK UNK, 1X/DAY
  5. FIBER [Concomitant]
     Active Substance: PSYLLIUM HUSK
     Dosage: UNK UNK, DAILY (EVERY DAY TO KEEP HER REGULAR)
  6. VENLAFAXINE [Concomitant]
     Active Substance: VENLAFAXINE HYDROCHLORIDE
     Indication: DEPRESSION
     Dosage: 75 MG, 1X/DAY
  7. GLUCOSAMINE + CHONDROITIN [Concomitant]
     Indication: ARTHRITIS
     Dosage: GLUCOSAMINE 1.5 G AND CHONDROITIN 1.2 G TWO A DAY
  8. NEURONTIN [Suspect]
     Active Substance: GABAPENTIN
     Indication: NERVE INJURY
     Dosage: 800 MG, UNK (800 MG TABLET EVERY 2 HOURS)
     Route: 048
  9. VITAMIN B6 [Concomitant]
     Active Substance: PYRIDOXINE HYDROCHLORIDE
     Indication: NERVE INJURY
     Dosage: 100 MG, 1X/DAY

REACTIONS (3)
  - Liver function test abnormal [Unknown]
  - Depression [Unknown]
  - Intentional overdose [Unknown]
